FAERS Safety Report 18682091 (Version 1)
Quarter: 2020Q4

REPORT INFORMATION
  Report Type: Spontaneous
  Country: US (occurrence: US)
  Receive Date: 20201228
  Receipt Date: 20201228
  Transmission Date: 20210114
  Serious: Yes (Hospitalization)
  Sender: FDA-Public Use
  Company Number: None

PATIENT
  Age: 75 Year
  Sex: Male
  Weight: 72.57 kg

DRUGS (1)
  1. APIXABAN (APIXABAN 5MG TAB) [Suspect]
     Active Substance: APIXABAN
     Indication: PULMONARY EMBOLISM
     Route: 048
     Dates: start: 20191029, end: 20201128

REACTIONS (5)
  - Rectal haemorrhage [None]
  - Diverticulitis [None]
  - Haematochezia [None]
  - Polyp [None]
  - Haematuria [None]

NARRATIVE: CASE EVENT DATE: 20201127
